FAERS Safety Report 17614141 (Version 7)
Quarter: 2022Q3

REPORT INFORMATION
  Report Type: Spontaneous
  Country: PL (occurrence: PL)
  Receive Date: 20200402
  Receipt Date: 20220801
  Transmission Date: 20221026
  Serious: Yes (Hospitalization, Other)
  Sender: FDA-Public Use
  Company Number: PL-REGENERON PHARMACEUTICALS, INC.-2020-12080

PATIENT
  Age: 82 Year
  Sex: Male

DRUGS (21)
  1. CARBOPLATIN [Suspect]
     Active Substance: CARBOPLATIN
     Indication: Non-small cell lung cancer stage IIIB
     Dosage: AUC OF 5 OR 6 MG/ML/MINUTE, Q3W
     Route: 042
     Dates: start: 20191219, end: 20191219
  2. CARBOPLATIN [Suspect]
     Active Substance: CARBOPLATIN
     Dosage: AUC OF 5 OR 6 MG/ML/MINUTE, Q3W
     Route: 042
     Dates: start: 20200128, end: 20200128
  3. CARBOPLATIN [Suspect]
     Active Substance: CARBOPLATIN
     Route: 042
     Dates: start: 20191219, end: 20191219
  4. PACLITAXEL [Suspect]
     Active Substance: PACLITAXEL
     Indication: Non-small cell lung cancer stage IIIB
     Dosage: 200 MG/M2, Q3W
     Route: 042
     Dates: start: 20191219, end: 20191219
  5. PACLITAXEL [Suspect]
     Active Substance: PACLITAXEL
     Dosage: 200 MG/M2, Q3W
     Route: 042
     Dates: start: 20200128, end: 20200128
  6. PACLITAXEL [Suspect]
     Active Substance: PACLITAXEL
     Dosage: 200 MG/M2, Q3W
     Route: 042
     Dates: start: 20191219, end: 20191219
  7. CEMIPLIMAB [Suspect]
     Active Substance: CEMIPLIMAB
     Indication: Non-small cell lung cancer stage IIIB
     Dosage: 350 MG, EVERY 3 WEEKS (Q3W)
     Route: 042
     Dates: start: 20191219, end: 20191219
  8. CEMIPLIMAB [Suspect]
     Active Substance: CEMIPLIMAB
     Dosage: 350 MG, EVERY 3 WEEKS
     Route: 042
     Dates: start: 20200128, end: 20200128
  9. FILGRASTIM [Concomitant]
     Active Substance: FILGRASTIM
     Indication: Neutropenia
     Dosage: UNK
  10. FILGRASTIM [Concomitant]
     Active Substance: FILGRASTIM
     Route: 065
  11. PREDNISONE [Concomitant]
     Active Substance: PREDNISONE
     Dosage: UNK
     Route: 065
  12. METFORMIN HYDROCHLORIDE [Concomitant]
     Active Substance: METFORMIN HYDROCHLORIDE
     Dosage: UNK
     Route: 065
  13. MEROPENEM [Concomitant]
     Active Substance: MEROPENEM
     Dosage: UNK
     Route: 065
  14. FLUCONAZOLE [Concomitant]
     Active Substance: FLUCONAZOLE
     Dosage: UNK
     Route: 065
  15. METOPROLOL TARTRATE [Concomitant]
     Active Substance: METOPROLOL TARTRATE
     Dosage: UNK
     Route: 065
  16. ACYCLOVIR [Concomitant]
     Active Substance: ACYCLOVIR
     Dosage: UNK
     Route: 065
  17. PREDNISONE [Concomitant]
     Active Substance: PREDNISONE
     Dosage: 35 MG
     Route: 065
     Dates: start: 20200110, end: 20200114
  18. CEFTRIAXONE SODIUM [Concomitant]
     Active Substance: CEFTRIAXONE SODIUM
     Dosage: UNK
     Route: 065
  19. AUGMENTIN [Concomitant]
     Active Substance: AMOXICILLIN\CLAVULANATE POTASSIUM
     Dosage: UNK
     Route: 065
  20. CEMIPLIMAB [Suspect]
     Active Substance: CEMIPLIMAB
     Indication: Non-small cell lung cancer stage IIIB
     Dosage: 350 MG, Q3W
     Route: 042
     Dates: start: 20191219, end: 20191219
  21. CEMIPLIMAB [Suspect]
     Active Substance: CEMIPLIMAB
     Dosage: 350 MG, Q3W
     Route: 042
     Dates: start: 20200128, end: 20200128

REACTIONS (16)
  - Infection [Recovered/Resolved]
  - Infection [Recovered/Resolved]
  - Urinary tract infection [Recovered/Resolved]
  - Pyrexia [Recovering/Resolving]
  - Enterobacter test positive [Unknown]
  - Staphylococcus test positive [Unknown]
  - Haemoglobin decreased [Unknown]
  - Lipase increased [Unknown]
  - Amylase increased [Unknown]
  - Blood creatinine increased [Unknown]
  - C-reactive protein increased [Unknown]
  - Neutrophil count decreased [Unknown]
  - Platelet count decreased [Unknown]
  - White blood cell count decreased [Unknown]
  - Pancreatic enzymes increased [Recovering/Resolving]
  - Blood corticotrophin increased [Recovered/Resolved]

NARRATIVE: CASE EVENT DATE: 20200108
